FAERS Safety Report 16082287 (Version 6)
Quarter: 2022Q1

REPORT INFORMATION
  Report Type: Spontaneous
  Country: CA (occurrence: CA)
  Receive Date: 20190318
  Receipt Date: 20220125
  Transmission Date: 20220424
  Serious: Yes (Death, Hospitalization, Other)
  Sender: FDA-Public Use
  Company Number: CA-009507513-1903CAN006528

PATIENT
  Age: 50 Year
  Sex: Female
  Weight: 73 kg

DRUGS (7)
  1. TEMODAL [Suspect]
     Active Substance: TEMOZOLOMIDE
     Indication: Product used for unknown indication
     Dosage: FORMULATION: NOT SPECIFIED
     Route: 065
  2. AVASTIN [Suspect]
     Active Substance: BEVACIZUMAB
     Indication: Glioblastoma
     Dosage: 1100 MILLIGRAM, SOLUTION INTRAVENOUS
     Route: 042
  3. AVASTIN [Suspect]
     Active Substance: BEVACIZUMAB
     Indication: Brain neoplasm malignant
     Dosage: 1000 MILLIGRAM, FORMULATION: HERBAL TEA
     Route: 042
  4. AVASTIN [Suspect]
     Active Substance: BEVACIZUMAB
     Dosage: 1000 MILLIGRAM
     Route: 042
  5. AVASTIN [Suspect]
     Active Substance: BEVACIZUMAB
     Dosage: 1000 MILLIGRAM; FORMULATION: NOT SPECIFIED
     Route: 065
  6. DILATIN [Concomitant]
     Indication: Product used for unknown indication
     Dosage: UNK
     Route: 065
  7. FENTANYL [Concomitant]
     Active Substance: FENTANYL
     Indication: Product used for unknown indication
     Dosage: FORMULATION: NOT SPECIFIED
     Route: 065

REACTIONS (12)
  - Asthenia [Fatal]
  - Full blood count abnormal [Fatal]
  - Blood pressure increased [Fatal]
  - Coagulation time prolonged [Fatal]
  - Death [Fatal]
  - Fatigue [Fatal]
  - Headache [Fatal]
  - Infrequent bowel movements [Fatal]
  - Nausea [Fatal]
  - Seizure [Fatal]
  - Tongue ulceration [Fatal]
  - Weight increased [Fatal]
